FAERS Safety Report 20327028 (Version 1)
Quarter: 2022Q1

REPORT INFORMATION
  Report Type: Spontaneous
  Country: US (occurrence: US)
  Receive Date: 20220112
  Receipt Date: 20220112
  Transmission Date: 20220423
  Serious: Yes (Other)
  Sender: FDA-Public Use
  Company Number: US-002147023-NVSC2022US003159

PATIENT
  Sex: Female

DRUGS (1)
  1. VOLTAREN [Suspect]
     Active Substance: DICLOFENAC SODIUM
     Indication: Ankylosing spondylitis
     Dosage: UNK
     Route: 048

REACTIONS (6)
  - Renal impairment [Unknown]
  - Ankylosing spondylitis [Unknown]
  - Pain [Unknown]
  - Tendonitis [Unknown]
  - Rash pruritic [Unknown]
  - Musculoskeletal stiffness [Unknown]
